FAERS Safety Report 5728110-7 (Version None)
Quarter: 2008Q2

REPORT INFORMATION
  Report Type: 
  Country: None (occurrence: None)
  Receive Date: 20080505
  Receipt Date: 20080430
  Transmission Date: 20081010
  Serious: Yes (Hospitalization, Other)
  Sender: FDA-Public Use
  Company Number: FR-GENENTECH-259343

PATIENT
  Sex: Male

DRUGS (2)
  1. RAPTIVA [Suspect]
     Indication: PSORIASIS
     Dates: start: 20070301, end: 20071201
  2. RAPTIVA [Suspect]
     Dates: start: 20080101

REACTIONS (3)
  - CHRONIC INFLAMMATORY DEMYELINATING POLYRADICULONEUROPATHY [None]
  - GAIT DISTURBANCE [None]
  - PSORIASIS [None]
